FAERS Safety Report 15998933 (Version 1)
Quarter: 2019Q1

REPORT INFORMATION
  Report Type: Other
  Country: GB (occurrence: GB)
  Receive Date: 20190223
  Receipt Date: 20190223
  Transmission Date: 20190418
  Serious: Yes (Life-Threatening, Other)
  Sender: FDA-Public Use
  Company Number: GB-ACCORD-108041

PATIENT
  Age: 7 Year

DRUGS (5)
  1. FLUDARABINE/FLUDARABINE PHOSPHATE [Suspect]
     Active Substance: FLUDARABINE PHOSPHATE
     Indication: BONE MARROW CONDITIONING REGIMEN
     Dosage: 150 MG/M2
     Route: 065
  2. CICLOSPORIN [Suspect]
     Active Substance: CYCLOSPORINE
     Indication: PROPHYLAXIS AGAINST GRAFT VERSUS HOST DISEASE
     Route: 065
  3. MELPHALAN. [Suspect]
     Active Substance: MELPHALAN
     Indication: BONE MARROW CONDITIONING REGIMEN
     Dosage: 140 MG/M2
     Route: 065
  4. ALEMTUZUMAB [Suspect]
     Active Substance: ALEMTUZUMAB
     Indication: BONE MARROW CONDITIONING REGIMEN
     Dosage: 1 MG/KG
     Route: 065
  5. MYCOPHENOLIC ACID. [Suspect]
     Active Substance: MYCOPHENOLIC ACID
     Indication: PROPHYLAXIS AGAINST GRAFT VERSUS HOST DISEASE
     Route: 065

REACTIONS (4)
  - Adenovirus infection [Unknown]
  - Renal cell carcinoma [Recovered/Resolved]
  - Infection reactivation [Unknown]
  - Autoimmune neutropenia [Unknown]
